FAERS Safety Report 4855405-1 (Version None)
Quarter: 2005Q4

REPORT INFORMATION
  Report Type: 
  Country: None (occurrence: None)
  Receive Date: 20051125
  Receipt Date: 20050202
  Transmission Date: 20060501
  Serious: Yes (Hospitalization)
  Sender: FDA-Public Use
  Company Number: US-JNJFOC-20050100499

PATIENT
  Age: 38 Year
  Sex: Male
  Weight: 74.3899 kg

DRUGS (1)
  1. LEVAQUIN [Suspect]
     Indication: PROSTATITIS
     Dosage: 500 MG
     Dates: start: 20041101, end: 20041201

REACTIONS (3)
  - INSOMNIA [None]
  - PSYCHOTIC DISORDER [None]
  - TREMOR [None]
